FAERS Safety Report 19486961 (Version 1)
Quarter: 2021Q3

REPORT INFORMATION
  Report Type: Spontaneous
  Country: PK (occurrence: PK)
  Receive Date: 20210702
  Receipt Date: 20210702
  Transmission Date: 20211014
  Serious: Yes (Other)
  Sender: FDA-Public Use
  Company Number: PK-SUN PHARMACEUTICAL INDUSTRIES LTD-2021RR-302885

PATIENT
  Age: 30 Year
  Sex: Female

DRUGS (3)
  1. CEFIXIME. [Suspect]
     Active Substance: CEFIXIME
     Indication: COVID-19
     Dosage: 400 MILLIGRAMS, UNK
     Route: 065
  2. PARACETAMOL [Suspect]
     Active Substance: ACETAMINOPHEN
     Indication: COVID-19
     Dosage: THRICE A DAY FOR ONE WEEK
     Route: 065
  3. METRONIDAZOLE. [Suspect]
     Active Substance: METRONIDAZOLE
     Indication: COVID-19
     Dosage: 400 MILLIGRAMS, UNK
     Route: 065

REACTIONS (2)
  - Off label use [Recovered/Resolved]
  - Exposure during pregnancy [Unknown]
